FAERS Safety Report 17799189 (Version 1)
Quarter: 2020Q2

REPORT INFORMATION
  Report Type: Report from Study
  Country: US (occurrence: US)
  Receive Date: 20200518
  Receipt Date: 20200518
  Transmission Date: 20200714
  Serious: Yes (Other)
  Sender: FDA-Public Use
  Company Number: US-JNJFOC-20200506311

PATIENT
  Age: 49 Year
  Sex: Female

DRUGS (12)
  1. PREMARIN [Concomitant]
     Active Substance: ESTROGENS, CONJUGATED
     Route: 048
     Dates: start: 20200124
  2. MEDROXYPROGESTERONE [Concomitant]
     Active Substance: MEDROXYPROGESTERONE
     Route: 048
     Dates: start: 20200124
  3. SERTRALINE [Concomitant]
     Active Substance: SERTRALINE HYDROCHLORIDE
     Route: 048
     Dates: start: 20200124
  4. BENZTROPINE. [Concomitant]
     Active Substance: BENZTROPINE
     Route: 048
     Dates: start: 20200124
  5. ESZOPICLONE. [Concomitant]
     Active Substance: ESZOPICLONE
     Route: 048
     Dates: start: 20200124
  6. LAMOTRIGINE. [Concomitant]
     Active Substance: LAMOTRIGINE
     Route: 048
     Dates: start: 20200124
  7. CENTRUM WOMEN [Concomitant]
     Active Substance: VITAMINS
     Dosage: 18 MG-400 MCG
     Route: 048
     Dates: start: 20170628
  8. SPRAVATO [Suspect]
     Active Substance: ESKETAMINE
     Indication: DEPRESSION
  9. CARIPRAZINE [Concomitant]
     Active Substance: CARIPRAZINE
     Route: 048
     Dates: start: 20200115
  10. DIAZEPAM. [Concomitant]
     Active Substance: DIAZEPAM
     Route: 048
     Dates: start: 20191226
  11. LEVOTHYROXINE. [Concomitant]
     Active Substance: LEVOTHYROXINE
     Route: 048
     Dates: start: 20191120
  12. SPRAVATO [Suspect]
     Active Substance: ESKETAMINE
     Dates: start: 20200505, end: 20200505

REACTIONS (1)
  - Suicidal ideation [Unknown]

NARRATIVE: CASE EVENT DATE: 20200505
